FAERS Safety Report 20876151 (Version 1)
Quarter: 2022Q2

REPORT INFORMATION
  Report Type: Spontaneous
  Country: US (occurrence: US)
  Receive Date: 20220526
  Receipt Date: 20220526
  Transmission Date: 20220720
  Serious: No
  Sender: FDA-Public Use
  Company Number: US-NOVEN PHARMACEUTICALS, INC.-2021-NOV-US003915

PATIENT
  Age: 15 Year
  Sex: Male

DRUGS (1)
  1. DAYTRANA [Suspect]
     Active Substance: METHYLPHENIDATE
     Indication: Attention deficit hyperactivity disorder
     Dosage: 10MG/ 9HOURS, 1 PATCH PER DAY
     Route: 062
     Dates: start: 20211108

REACTIONS (8)
  - Therapeutic product ineffective [Recovered/Resolved]
  - Product dose omission issue [Not Recovered/Not Resolved]
  - Product administration error [Recovered/Resolved]
  - Accidental exposure to product [Recovered/Resolved]
  - Device adhesion issue [Recovered/Resolved]
  - Device breakage [Recovered/Resolved]
  - Device difficult to use [Recovered/Resolved]
  - Product adhesion issue [Recovered/Resolved]

NARRATIVE: CASE EVENT DATE: 20211108
